FAERS Safety Report 8192985-5 (Version None)
Quarter: 2012Q1

REPORT INFORMATION
  Report Type: 
  Country: None (occurrence: None)
  Receive Date: 20120308
  Receipt Date: 20120228
  Transmission Date: 20120608
  Serious: Yes (Other)
  Sender: FDA-Public Use
  Company Number: IL-JNJFOC-20120302453

PATIENT
  Age: 76 Year
  Sex: Male

DRUGS (25)
  1. RITUXIMAB [Suspect]
     Route: 065
  2. CYCLOPHOSPHAMIDE [Suspect]
     Route: 065
  3. PREDNISONE TAB [Suspect]
     Route: 065
  4. DOXORUBICIN HCL [Suspect]
     Route: 042
  5. RITUXIMAB [Suspect]
     Route: 065
  6. RITUXIMAB [Suspect]
     Route: 065
  7. VINCRISTINE [Suspect]
     Route: 065
  8. VINCRISTINE [Suspect]
     Route: 065
  9. PREDNISONE TAB [Suspect]
     Route: 065
  10. CYCLOPHOSPHAMIDE [Suspect]
     Route: 065
  11. DOXORUBICIN HCL [Suspect]
     Indication: DIFFUSE LARGE B-CELL LYMPHOMA
     Route: 042
  12. VINCRISTINE [Suspect]
     Route: 065
  13. RITUXIMAB [Suspect]
     Route: 065
  14. PREDNISONE TAB [Suspect]
     Route: 065
  15. DOXORUBICIN HCL [Suspect]
     Route: 042
  16. CYCLOPHOSPHAMIDE [Suspect]
     Route: 065
  17. VINCRISTINE [Suspect]
     Indication: DIFFUSE LARGE B-CELL LYMPHOMA
     Route: 065
  18. DOXORUBICIN HCL [Suspect]
     Route: 042
  19. PREDNISONE TAB [Suspect]
     Route: 065
  20. DOXORUBICIN HCL [Suspect]
     Route: 042
  21. RITUXIMAB [Suspect]
     Indication: DIFFUSE LARGE B-CELL LYMPHOMA
     Route: 065
  22. CYCLOPHOSPHAMIDE [Suspect]
     Indication: DIFFUSE LARGE B-CELL LYMPHOMA
     Route: 065
  23. CYCLOPHOSPHAMIDE [Suspect]
     Route: 065
  24. VINCRISTINE [Suspect]
     Route: 065
  25. PREDNISONE TAB [Suspect]
     Indication: DIFFUSE LARGE B-CELL LYMPHOMA
     Route: 065

REACTIONS (1)
  - PNEUMOCYSTIS JIROVECI PNEUMONIA [None]
